FAERS Safety Report 4365143-X (Version None)
Quarter: 2004Q2

REPORT INFORMATION
  Report Type: 
  Country: None (occurrence: None)
  Receive Date: 20040525
  Receipt Date: 20040219
  Transmission Date: 20050107
  Serious: No
  Sender: FDA-Public Use
  Company Number: PHEH2004US02122

PATIENT
  Age: 81 Year
  Sex: Female

DRUGS (5)
  1. ZELNORM [Suspect]
     Indication: IRRITABLE BOWEL SYNDROME
     Dosage: 3 MG, ONCE/SINGLE, ORAL
     Route: 048
     Dates: start: 20040218, end: 20040218
  2. DIOVAN [Concomitant]
  3. TOPROL-XL [Concomitant]
  4. ASPIRIN [Concomitant]
  5. KLONOPIN [Concomitant]

REACTIONS (5)
  - FLATULENCE [None]
  - GASTROINTESTINAL MOTILITY DISORDER [None]
  - INSOMNIA [None]
  - NAUSEA [None]
  - STOOLS WATERY [None]
